FAERS Safety Report 12421002 (Version 1)
Quarter: 2016Q2

REPORT INFORMATION
  Report Type: Spontaneous
  Country: US (occurrence: US)
  Receive Date: 20160531
  Receipt Date: 20160531
  Transmission Date: 20160815
  Serious: No
  Sender: FDA-Public Use
  Company Number: US-GLAXOSMITHKLINE-US2016076724

PATIENT
  Age: 61 Year
  Sex: Female

DRUGS (1)
  1. FLONASE [Suspect]
     Active Substance: FLUTICASONE PROPIONATE
     Indication: PRODUCT USED FOR UNKNOWN INDICATION
     Dosage: UNK
     Dates: start: 2001

REACTIONS (3)
  - Application site haemorrhage [Not Recovered/Not Resolved]
  - Application site reaction [Not Recovered/Not Resolved]
  - Skin irritation [Not Recovered/Not Resolved]
